FAERS Safety Report 4481471-1 (Version None)
Quarter: 2004Q3

REPORT INFORMATION
  Report Type: 
  Country: None (occurrence: None)
  Receive Date: 20040923
  Receipt Date: 20040610
  Transmission Date: 20050211
  Serious: No
  Sender: FDA-Public Use
  Company Number: USA040669941

PATIENT
  Age: 71 Year
  Sex: Female

DRUGS (21)
  1. FORTEO [Suspect]
     Indication: OSTEOPOROSIS
     Dates: start: 20030601
  2. SYNTHROID [Concomitant]
  3. GLUCOSAMINE W/CHONDROITIN [Concomitant]
  4. CITRACAL WITH VITAMIN D [Concomitant]
  5. NEURONTIN [Concomitant]
  6. GRAPE SEED EXTRACT [Concomitant]
  7. CYTOTEC [Concomitant]
  8. NAPROXEN [Concomitant]
  9. PLAVIX [Concomitant]
  10. NEXIUM [Concomitant]
  11. ASPIRIN [Concomitant]
  12. SOMA [Concomitant]
  13. TEGRETOL [Concomitant]
  14. DRISDOL [Concomitant]
  15. PEPCID AC [Concomitant]
  16. NULEV (HYOSCYAMINE SULFATE) [Concomitant]
  17. ZOLOFT [Concomitant]
  18. XANAX [Concomitant]
  19. FERROUS SULFATE TAB [Concomitant]
  20. ZYRTEC [Concomitant]
  21. VITAMIN B-12 [Concomitant]

REACTIONS (4)
  - ARTHRALGIA [None]
  - BONE PAIN [None]
  - HOT FLUSH [None]
  - HYPERHIDROSIS [None]
